FAERS Safety Report 14629886 (Version 1)
Quarter: 2018Q1

REPORT INFORMATION
  Report Type: Spontaneous
  Country: US (occurrence: US)
  Receive Date: 20180313
  Receipt Date: 20180313
  Transmission Date: 20180509
  Serious: No
  Sender: FDA-Public Use
  Company Number: US-BAYER-2018-048252

PATIENT
  Age: 85 Year
  Sex: Male
  Weight: 84 kg

DRUGS (5)
  1. MIRALAX [Suspect]
     Active Substance: POLYETHYLENE GLYCOL 3350
     Indication: GASTROINTESTINAL DISORDER
     Dosage: 1 CAPFUL DOSE
     Route: 048
     Dates: start: 20180304, end: 20180311
  2. FINASTERIDE. [Concomitant]
     Active Substance: FINASTERIDE
  3. LIPITOR [Concomitant]
     Active Substance: ATORVASTATIN CALCIUM
  4. ALLOPURINOL. [Concomitant]
     Active Substance: ALLOPURINOL
  5. TRIAMTERENE. [Concomitant]
     Active Substance: TRIAMTERENE

REACTIONS (2)
  - Drug ineffective [Unknown]
  - Product use issue [Unknown]
